FAERS Safety Report 23687501 (Version 1)
Quarter: 2024Q1

REPORT INFORMATION
  Report Type: Spontaneous
  Country: US (occurrence: None)
  Receive Date: 20240329
  Receipt Date: 20240329
  Transmission Date: 20240410
  Serious: Yes (Other)
  Sender: FDA-Public Use
  Company Number: None

PATIENT
  Age: 31 Year
  Sex: Female

DRUGS (1)
  1. MAVYRET [Suspect]
     Active Substance: GLECAPREVIR\PIBRENTASVIR
     Indication: Product used for unknown indication
     Dosage: OTHER QUANTITY : 100MG/40MG ;?FREQUENCY : DAILY;?
     Route: 048
     Dates: start: 202403

REACTIONS (4)
  - Seizure [None]
  - Chromaturia [None]
  - Faeces discoloured [None]
  - Laboratory test abnormal [None]

NARRATIVE: CASE EVENT DATE: 20240301
